FAERS Safety Report 15848875 (Version 3)
Quarter: 2022Q4

REPORT INFORMATION
  Report Type: Spontaneous
  Country: US (occurrence: US)
  Receive Date: 20190121
  Receipt Date: 20221114
  Transmission Date: 20230112
  Serious: Yes (Other)
  Sender: FDA-Public Use
  Company Number: US-PFIZER INC-2019025991

PATIENT
  Age: 63 Year
  Sex: Female

DRUGS (1)
  1. XELJANZ XR [Suspect]
     Active Substance: TOFACITINIB CITRATE
     Indication: Rheumatoid arthritis
     Dosage: 11 MG, DAILY
     Route: 048
     Dates: start: 201801

REACTIONS (4)
  - Upper limb fracture [Unknown]
  - Fall [Unknown]
  - Rheumatoid arthritis [Unknown]
  - Drug dependence [Unknown]

NARRATIVE: CASE EVENT DATE: 20181101
